FAERS Safety Report 7521018-6 (Version None)
Quarter: 2011Q2

REPORT INFORMATION
  Report Type: 
  Country: None (occurrence: None)
  Receive Date: 20110603
  Receipt Date: 20101115
  Transmission Date: 20111010
  Serious: Yes (Other)
  Sender: FDA-Public Use
  Company Number: US-BAYER-201041711NA

PATIENT
  Age: 65 Year
  Sex: Female

DRUGS (2)
  1. ZIAC [Concomitant]
     Indication: BLOOD PRESSURE ABNORMAL
  2. AVELOX [Suspect]
     Indication: PNEUMONIA
     Route: 048
     Dates: start: 20101112, end: 20101113

REACTIONS (3)
  - PARAESTHESIA [None]
  - PNEUMONIA [None]
  - DEHYDRATION [None]
